FAERS Safety Report 8015474-7 (Version None)
Quarter: 2011Q4

REPORT INFORMATION
  Report Type: 
  Country: None (occurrence: None)
  Receive Date: 20111227
  Receipt Date: 20111227
  Transmission Date: 20120403
  Serious: Yes (Death, Hospitalization)
  Sender: FDA-Public Use
  Company Number: None

PATIENT
  Sex: Male
  Weight: 54.4 kg

DRUGS (2)
  1. ETOPOSIDE [Suspect]
     Dosage: 480 MG
     Dates: end: 20100325
  2. CISPLATIN [Suspect]
     Dosage: 120 MG
     Dates: end: 20100323

REACTIONS (9)
  - FUNGAL TEST NEGATIVE [None]
  - DISEASE COMPLICATION [None]
  - WHITE BLOOD CELL COUNT INCREASED [None]
  - LOBAR PNEUMONIA [None]
  - PRODUCTIVE COUGH [None]
  - BLOOD SODIUM ABNORMAL [None]
  - RESPIRATORY ACIDOSIS [None]
  - DYSPNOEA [None]
  - ASTHENIA [None]
